FAERS Safety Report 21885200 (Version 2)
Quarter: 2023Q1

REPORT INFORMATION
  Report Type: Spontaneous
  Country: US (occurrence: US)
  Receive Date: 20230119
  Receipt Date: 20230130
  Transmission Date: 20230418
  Serious: No
  Sender: FDA-Public Use
  Company Number: US-TEVA-2023-US-2845984

PATIENT
  Age: 76 Year
  Sex: Female

DRUGS (1)
  1. CYCLOSPORINE MODIFIED [Suspect]
     Active Substance: CYCLOSPORINE
     Indication: Autoimmune retinopathy
     Dosage: SOFT GELATIN
     Route: 065

REACTIONS (6)
  - Musculoskeletal disorder [Unknown]
  - Muscular weakness [Unknown]
  - Product storage error [Unknown]
  - Product prescribing issue [Unknown]
  - Product packaging difficult to open [Unknown]
  - Incorrect dose administered [Unknown]
